FAERS Safety Report 25385664 (Version 2)
Quarter: 2025Q3

REPORT INFORMATION
  Report Type: Spontaneous
  Country: EU (occurrence: EU)
  Receive Date: 20250602
  Receipt Date: 20250709
  Transmission Date: 20251021
  Serious: Yes (Hospitalization, Other)
  Sender: Haleon PLC
  Company Number: EU-MENARINI-PL-MEN-088819

PATIENT
  Age: 60 Year
  Sex: Female

DRUGS (24)
  1. DICLOFENAC [Suspect]
     Active Substance: DICLOFENAC
     Indication: Inflammation
     Route: 065
  2. DICLOFENAC [Suspect]
     Active Substance: DICLOFENAC
     Indication: Pain
  3. DICLOFENAC [Suspect]
     Active Substance: DICLOFENAC
     Indication: Antiinflammatory therapy
  4. DICLOFENAC [Suspect]
     Active Substance: DICLOFENAC
     Indication: Rheumatoid arthritis
  5. ETORICOXIB [Suspect]
     Active Substance: ETORICOXIB
     Indication: Pain
     Dosage: 90 MG, QD
     Route: 065
  6. KETOPROFEN [Suspect]
     Active Substance: KETOPROFEN
     Indication: Inflammatory pain
     Route: 065
  7. MELOXICAM [Suspect]
     Active Substance: MELOXICAM
     Indication: Inflammation
  8. MELOXICAM [Suspect]
     Active Substance: MELOXICAM
     Indication: Pain
  9. PREGABALIN [Concomitant]
     Active Substance: PREGABALIN
     Indication: Product used for unknown indication
  10. METHOTREXATE SODIUM [Suspect]
     Active Substance: METHOTREXATE SODIUM
     Indication: Rheumatoid arthritis
     Dosage: 15 MILLIGRAM TOTAL (15 MG, SINGLE DOSE, INJECTION^
  11. METHOTREXATE SODIUM [Suspect]
     Active Substance: METHOTREXATE SODIUM
     Indication: Pain
  12. METHOTREXATE SODIUM [Suspect]
     Active Substance: METHOTREXATE SODIUM
     Indication: Inflammation
  13. ACETAMINOPHEN [Suspect]
     Active Substance: ACETAMINOPHEN
     Indication: Antiinflammatory therapy
     Route: 048
  14. ACETAMINOPHEN [Suspect]
     Active Substance: ACETAMINOPHEN
     Indication: Inflammation
     Route: 048
  15. ACETAMINOPHEN [Suspect]
     Active Substance: ACETAMINOPHEN
     Indication: Pain
  16. ACETAMINOPHEN [Suspect]
     Active Substance: ACETAMINOPHEN
     Indication: Rheumatoid arthritis
  17. TRAMADOL HYDROCHLORIDE [Suspect]
     Active Substance: TRAMADOL HYDROCHLORIDE
     Indication: Pain
     Route: 065
  18. ASPIRIN [Suspect]
     Active Substance: ASPIRIN
     Indication: Stenosis
  19. PANTOPRAZOLE [Concomitant]
     Active Substance: PANTOPRAZOLE
     Indication: Product used for unknown indication
  20. LEVOTHYROXINE [Concomitant]
     Active Substance: LEVOTHYROXINE
     Indication: Product used for unknown indication
  21. DICLOFENAC [Suspect]
     Active Substance: DICLOFENAC
     Indication: Rheumatoid arthritis
     Dates: start: 20210208
  22. DICLOFENAC [Suspect]
     Active Substance: DICLOFENAC
     Indication: Inflammation
  23. DICLOFENAC [Suspect]
     Active Substance: DICLOFENAC
     Indication: Pain
  24. DICLOFENAC [Suspect]
     Active Substance: DICLOFENAC
     Indication: Antiinflammatory therapy

REACTIONS (14)
  - Gastric ulcer [Unknown]
  - Chest pain [Recovering/Resolving]
  - Drug intolerance [Unknown]
  - Thyroid hormones decreased [Unknown]
  - Product use in unapproved indication [Unknown]
  - Gastritis [Recovered/Resolved]
  - Arthralgia [Recovering/Resolving]
  - Rheumatoid arthritis [Recovered/Resolved]
  - Haemorrhage [Unknown]
  - Diarrhoea haemorrhagic [Unknown]
  - Arthralgia [Recovering/Resolving]
  - Tachycardia [Unknown]
  - Haemoglobin abnormal [Unknown]
  - Diaphragmatic hernia [Unknown]

NARRATIVE: CASE EVENT DATE: 20210208
